FAERS Safety Report 16055365 (Version 1)
Quarter: 2019Q1

REPORT INFORMATION
  Report Type: Report from Study
  Country: PT (occurrence: PT)
  Receive Date: 20190311
  Receipt Date: 20190311
  Transmission Date: 20190418
  Serious: Yes (Other)
  Sender: FDA-Public Use
  Company Number: PT-ROCHE-2277724

PATIENT

DRUGS (1)
  1. RITUXIMAB. [Suspect]
     Active Substance: RITUXIMAB
     Indication: INTERSTITIAL LUNG DISEASE
     Dosage: TWICE: 2 WEEKS APART
     Route: 042

REACTIONS (3)
  - Lung neoplasm malignant [Unknown]
  - Infusion related reaction [Unknown]
  - Infection [Unknown]
